FAERS Safety Report 6647985-0 (Version None)
Quarter: 2010Q1

REPORT INFORMATION
  Report Type: 
  Country: None (occurrence: None)
  Receive Date: 20100324
  Receipt Date: 20100319
  Transmission Date: 20100710
  Serious: Yes (Life-Threatening, Hospitalization)
  Sender: FDA-Public Use
  Company Number: JP-NOVOPROD-305962

PATIENT
  Sex: Female
  Weight: 51 kg

DRUGS (10)
  1. LEVEMIR [Suspect]
     Indication: DIABETES MELLITUS
     Dosage: 25 IU, UNK
     Route: 058
     Dates: start: 20081217, end: 20090408
  2. VOGLIBOSE [Suspect]
     Dosage: 0.6 MG, UNK
     Dates: end: 20090407
  3. METFORMIN HCL [Suspect]
     Dosage: 1500 MG, UNK
     Route: 048
     Dates: start: 20050709, end: 20090407
  4. LIPITOR [Concomitant]
     Dosage: 5 MG, UNK
     Route: 048
     Dates: start: 20021128, end: 20090407
  5. NU LOTAN [Concomitant]
     Dosage: 25 MG, UNK
     Route: 048
  6. PANCREATIN [Concomitant]
     Dosage: 10 G, UNK
     Route: 048
     Dates: start: 20090414
  7. PANVITAN                           /05664201/ [Concomitant]
     Dosage: 1 G, UNK
     Route: 048
  8. BIOFERMIN R [Concomitant]
     Dosage: 2 G, UNK
     Route: 048
     Dates: start: 20090420
  9. THYRADIN [Concomitant]
     Dosage: 100 UG, UNK
     Route: 048
     Dates: start: 20090722
  10. FERROMAS [Concomitant]
     Dosage: 200 MG, UNK
     Route: 048
     Dates: start: 20090702

REACTIONS (3)
  - GLUCAGONOMA [None]
  - HYPOGLYCAEMIA [None]
  - PNEUMONIA ASPIRATION [None]
